FAERS Safety Report 7622434-4 (Version None)
Quarter: 2011Q3

REPORT INFORMATION
  Report Type: 
  Country: None (occurrence: None)
  Receive Date: 20110718
  Receipt Date: 20110718
  Transmission Date: 20111222
  Serious: No
  Sender: FDA-Public Use
  Company Number: None

PATIENT
  Sex: Female

DRUGS (1)
  1. BENAZEPRIL HYDROCHLORIDE [Suspect]
     Dosage: 10MG QD PO
     Route: 048
     Dates: start: 20110713, end: 20110715

REACTIONS (4)
  - DIZZINESS [None]
  - HEADACHE [None]
  - VISION BLURRED [None]
  - PRODUCT SUBSTITUTION ISSUE [None]
